FAERS Safety Report 7581880-8 (Version None)
Quarter: 2011Q2

REPORT INFORMATION
  Report Type: 
  Country: None (occurrence: None)
  Receive Date: 20110629
  Receipt Date: 20101208
  Transmission Date: 20111010
  Serious: Yes (Other)
  Sender: FDA-Public Use
  Company Number: PHHY2010DE92259

PATIENT
  Age: 63 Year
  Sex: Female

DRUGS (7)
  1. ZOLEDRONIC ACID [Suspect]
     Indication: BREAST CANCER METASTATIC
     Dosage: UNK UKN, UNK
     Route: 042
  2. CYCLOPHOSPHAMIDE [Concomitant]
  3. PAMIDRONATE DISODIUM [Suspect]
     Indication: BREAST CANCER METASTATIC
     Dosage: UNK UKN, UNK
     Route: 042
  4. MITOXANTRONE [Concomitant]
  5. METHOTREXATE [Concomitant]
  6. MELPHALAN HYDROCHLORIDE [Concomitant]
  7. FLUOROURACIL [Concomitant]

REACTIONS (2)
  - OSTEONECROSIS OF JAW [None]
  - ABSCESS [None]
